FAERS Safety Report 4733184-6 (Version None)
Quarter: 2005Q3

REPORT INFORMATION
  Report Type: 
  Country: None (occurrence: None)
  Receive Date: 20050803
  Receipt Date: 20050621
  Transmission Date: 20060218
  Serious: Yes (Other)
  Sender: FDA-Public Use
  Company Number: PHEH2005US07027

PATIENT
  Age: 58 Year
  Sex: Male

DRUGS (3)
  1. ZOMETA [Suspect]
     Indication: PROSTATE CANCER
     Dosage: 4 MG 1 TIME PER MONTH
     Dates: start: 20020701, end: 20050501
  2. STEROIDS NOS [Concomitant]
  3. TAXOTERE [Concomitant]
     Indication: PROSTATE CANCER
     Dosage: 65MG WEEKLY
     Route: 042
     Dates: start: 20050118, end: 20050628

REACTIONS (7)
  - ASEPTIC NECROSIS BONE [None]
  - BIOPSY BONE ABNORMAL [None]
  - BONE DISORDER [None]
  - GINGIVAL INFECTION [None]
  - OSTEONECROSIS [None]
  - PAIN IN JAW [None]
  - TOOTH EXTRACTION [None]
